FAERS Safety Report 25016180 (Version 3)
Quarter: 2025Q1

REPORT INFORMATION
  Report Type: Report from Study
  Country: US (occurrence: US)
  Receive Date: 20250227
  Receipt Date: 20250320
  Transmission Date: 20250409
  Serious: Yes (Hospitalization)
  Sender: GLAXOSMITHKLINE
  Company Number: US-GLAXOSMITHKLINE INC-US2025022341

PATIENT

DRUGS (1)
  1. MEPOLIZUMAB [Suspect]
     Active Substance: MEPOLIZUMAB
     Indication: Asthma

REACTIONS (3)
  - Product dose omission issue [Unknown]
  - Asthma [Unknown]
  - Emotional distress [Unknown]

NARRATIVE: CASE EVENT DATE: 20250101
